FAERS Safety Report 16197973 (Version 1)
Quarter: 2019Q2

REPORT INFORMATION
  Report Type: Spontaneous
  Country: US (occurrence: US)
  Receive Date: 20190415
  Receipt Date: 20190415
  Transmission Date: 20190711
  Serious: Yes (Other)
  Sender: FDA-Public Use
  Company Number: US-C B FLEET CO INC-201904-US-000868

PATIENT
  Sex: Male

DRUGS (1)
  1. BC (ASPIRIN\CAFFEINE) [Suspect]
     Active Substance: ASPIRIN\CAFFEINE
     Indication: PRODUCT USED FOR UNKNOWN INDICATION
     Dosage: UP TO 10 A DAY
     Route: 048

REACTIONS (9)
  - Dyspnoea [Not Recovered/Not Resolved]
  - Gastrooesophageal reflux disease [Not Recovered/Not Resolved]
  - Overdose [None]
  - Drug dependence [Not Recovered/Not Resolved]
  - Confusional state [Not Recovered/Not Resolved]
  - Dizziness [Not Recovered/Not Resolved]
  - Incorrect product administration duration [None]
  - Abdominal pain [Not Recovered/Not Resolved]
  - Inappropriate schedule of product administration [None]
